FAERS Safety Report 5874394-4 (Version None)
Quarter: 2008Q3

REPORT INFORMATION
  Report Type: 
  Country: None (occurrence: None)
  Receive Date: 20080908
  Receipt Date: 20080827
  Transmission Date: 20090109
  Serious: Yes (Death, Hospitalization)
  Sender: FDA-Public Use
  Company Number: KR-PFIZER INC-2006026013

PATIENT
  Sex: Female
  Weight: 87 kg

DRUGS (10)
  1. SU-011,248 [Suspect]
     Indication: METASTATIC RENAL CELL CARCINOMA
     Route: 048
     Dates: start: 20051209, end: 20060208
  2. AMLODIPINE BESYLATE [Concomitant]
     Route: 048
     Dates: start: 20040101, end: 20060220
  3. GLIMEPIRIDE [Concomitant]
     Route: 048
     Dates: start: 20040101, end: 20060220
  4. METFORMIN HCL [Concomitant]
     Route: 048
     Dates: start: 20040101, end: 20060220
  5. THIOCTACID [Concomitant]
     Route: 048
     Dates: start: 20040101, end: 20060220
  6. BIPHENYL DIMETHYL DICARBOXYLATE [Concomitant]
     Route: 048
     Dates: start: 19950101, end: 20060220
  7. SILYMARIN [Concomitant]
     Route: 048
     Dates: start: 19950101, end: 20060220
  8. ALL OTHER THERAPEUTIC PRODUCTS [Concomitant]
     Route: 048
     Dates: start: 20051230, end: 20060220
  9. ITOPRIDE [Concomitant]
     Route: 048
     Dates: start: 20051230, end: 20060220
  10. CIMETIDINE [Concomitant]
     Route: 048
     Dates: start: 20051230, end: 20060220

REACTIONS (1)
  - SEPSIS [None]
